FAERS Safety Report 19197203 (Version 6)
Quarter: 2022Q4

REPORT INFORMATION
  Report Type: Report from Study
  Country: US (occurrence: US)
  Receive Date: 20210429
  Receipt Date: 20221123
  Transmission Date: 20230113
  Serious: Yes (Other)
  Sender: FDA-Public Use
  Company Number: US-NOVARTISPH-NVSC2021US097344

PATIENT
  Age: 40 Year
  Sex: Male
  Weight: 83.3 kg

DRUGS (4)
  1. MYFORTIC [Suspect]
     Active Substance: MYCOPHENOLATE SODIUM
     Indication: Transplant
     Dosage: 720 MG, BID
     Route: 048
     Dates: start: 20130621, end: 20170824
  2. MYFORTIC [Suspect]
     Active Substance: MYCOPHENOLATE SODIUM
     Dosage: 720 MG, BID
     Route: 048
     Dates: start: 20200202
  3. MYFORTIC [Suspect]
     Active Substance: MYCOPHENOLATE SODIUM
     Dosage: UNK, BID
     Route: 048
     Dates: start: 202002
  4. MYCOPHENOLATE SODIUM [Suspect]
     Active Substance: MYCOPHENOLATE SODIUM
     Indication: Transplant
     Dosage: 720 MG, BID
     Route: 048
     Dates: start: 20170824, end: 20200210

REACTIONS (4)
  - Transplant rejection [Recovered/Resolved]
  - Diarrhoea [Recovering/Resolving]
  - Drug tolerance [Unknown]
  - Weight decreased [Unknown]

NARRATIVE: CASE EVENT DATE: 20130625
